FAERS Safety Report 17040319 (Version 1)
Quarter: 2019Q4

REPORT INFORMATION
  Report Type: Spontaneous
  Country: US (occurrence: US)
  Receive Date: 20191117
  Receipt Date: 20191117
  Transmission Date: 20200122
  Serious: No
  Sender: FDA-Public Use
  Company Number: US-TORRENT-00007455

PATIENT
  Age: 91 Year
  Sex: Female

DRUGS (1)
  1. LOSARTAN. [Suspect]
     Active Substance: LOSARTAN
     Indication: HYPERTENSION
     Dosage: UNKNOWN
     Dates: start: 2018, end: 20190106

REACTIONS (5)
  - Lacrimation increased [Unknown]
  - Eyelid margin crusting [Unknown]
  - Sensation of foreign body [Recovering/Resolving]
  - Sputum discoloured [Unknown]
  - Oropharyngeal pain [Recovering/Resolving]

NARRATIVE: CASE EVENT DATE: 20190109
